FAERS Safety Report 9998487 (Version 1)
Quarter: 2014Q1

REPORT INFORMATION
  Report Type: Report from Study
  Country: FR (occurrence: FR)
  Receive Date: 20140312
  Receipt Date: 20140312
  Transmission Date: 20141002
  Serious: Yes (Other)
  Sender: FDA-Public Use
  Company Number: FR-ROCHE-1358279

PATIENT
  Sex: Female

DRUGS (19)
  1. RITUXIMAB [Suspect]
     Indication: RHEUMATOID ARTHRITIS
     Route: 065
     Dates: start: 20080617
  2. RITUXIMAB [Suspect]
     Route: 065
     Dates: start: 20080707
  3. RITUXIMAB [Suspect]
     Route: 065
     Dates: start: 20090526
  4. RITUXIMAB [Suspect]
     Route: 065
     Dates: start: 20090609
  5. RITUXIMAB [Suspect]
     Route: 065
     Dates: start: 20121204
  6. RITUXIMAB [Suspect]
     Route: 065
     Dates: start: 20121217
  7. TOCILIZUMAB [Suspect]
     Indication: RHEUMATOID ARTHRITIS
     Route: 065
     Dates: start: 20100607, end: 201209
  8. ORENCIA [Suspect]
     Indication: RHEUMATOID ARTHRITIS
     Route: 065
     Dates: start: 20121015
  9. LEFLUNOMIDE [Concomitant]
     Route: 065
     Dates: start: 20080617
  10. LEFLUNOMIDE [Concomitant]
     Route: 065
     Dates: start: 20080707
  11. CORTANCYL [Concomitant]
     Route: 065
     Dates: start: 20080617
  12. CORTANCYL [Concomitant]
     Route: 065
     Dates: start: 20080707
  13. METHOTREXATE [Concomitant]
     Route: 065
     Dates: start: 20090526
  14. METHOTREXATE [Concomitant]
     Route: 065
     Dates: start: 20090609
  15. METHOTREXATE [Concomitant]
     Dosage: 15MG/WEEK
     Route: 065
     Dates: start: 20121204
  16. METHOTREXATE [Concomitant]
     Dosage: 15MG/WEEK
     Route: 065
     Dates: start: 20121217
  17. ATORVASTATIN [Concomitant]
     Route: 065
     Dates: start: 20121204
  18. ATORVASTATIN [Concomitant]
     Route: 065
     Dates: start: 20121217
  19. NOVATREX [Concomitant]
     Route: 065
     Dates: start: 20121015

REACTIONS (3)
  - Dyspnoea [Recovered/Resolved]
  - Erythema [Recovered/Resolved]
  - Guttate psoriasis [Not Recovered/Not Resolved]
